FAERS Safety Report 7425476-7 (Version None)
Quarter: 2011Q2

REPORT INFORMATION
  Report Type: 
  Country: None (occurrence: None)
  Receive Date: 20110418
  Receipt Date: 20110418
  Transmission Date: 20111010
  Serious: No
  Sender: FDA-Public Use
  Company Number: None

PATIENT
  Age: 40 Year
  Sex: Female
  Weight: 69.8539 kg

DRUGS (2)
  1. LOVENOX [Suspect]
     Indication: PREGNANCY
     Dosage: 1 SHOT DAILY SQ
     Route: 058
     Dates: start: 20110401, end: 20110416
  2. LOVENOX [Suspect]
     Indication: DEEP VEIN THROMBOSIS
     Dosage: 1 SHOT DAILY SQ
     Route: 058
     Dates: start: 20110401, end: 20110416

REACTIONS (5)
  - MEDICATION ERROR [None]
  - INCORRECT DOSE ADMINISTERED [None]
  - DRUG DISPENSING ERROR [None]
  - PRODUCT COMMINGLING [None]
  - PRODUCT LABEL ON WRONG PRODUCT [None]
